FAERS Safety Report 5689082-7 (Version None)
Quarter: 2008Q1

REPORT INFORMATION
  Report Type: 
  Country: None (occurrence: None)
  Receive Date: 20080331
  Receipt Date: 20080320
  Transmission Date: 20080703
  Serious: Yes (Death, Life-Threatening, Hospitalization)
  Sender: FDA-Public Use
  Company Number: FR-SANOFI-SYNTHELABO-A01200802028

PATIENT
  Sex: Male
  Weight: 75.5 kg

DRUGS (3)
  1. BEFIZAL [Concomitant]
     Indication: BLOOD CHOLESTEROL
     Dosage: 1 UNK
     Route: 065
     Dates: start: 20010101
  2. BUFLOMEDIL [Concomitant]
     Indication: ARTERITIS
     Dosage: 3 UNK
     Route: 065
     Dates: start: 20070101
  3. PLAVIX [Suspect]
     Indication: ARTERITIS
     Route: 048
     Dates: start: 20080117

REACTIONS (4)
  - ANAEMIA [None]
  - FACIAL PALSY [None]
  - HEMIPLEGIA [None]
  - ISCHAEMIC STROKE [None]
